FAERS Safety Report 8709961 (Version 5)
Quarter: 2016Q2

REPORT INFORMATION
  Report Type: Spontaneous
  Country: US (occurrence: US)
  Receive Date: 20120806
  Receipt Date: 20160623
  Transmission Date: 20160815
  Serious: Yes (Hospitalization, Other)
  Sender: FDA-Public Use
  Company Number: US-ASTRAZENECA-2012SE54040

PATIENT
  Age: 661 Month
  Sex: Male
  Weight: 74.8 kg

DRUGS (42)
  1. RANITIDINE HYDROCHLORIDE. [Concomitant]
     Active Substance: RANITIDINE HYDROCHLORIDE
     Route: 048
     Dates: start: 20151201
  2. MELOXICAM. [Concomitant]
     Active Substance: MELOXICAM
     Dosage: 15.0MG UNKNOWN
     Dates: start: 20160113
  3. METFORMIN HCL [Concomitant]
     Active Substance: METFORMIN HYDROCHLORIDE
     Dosage: 1000.0MG UNKNOWN
     Dates: start: 20101220
  4. ENALAPRIL MALEATE. [Concomitant]
     Active Substance: ENALAPRIL MALEATE
     Dosage: 2.5MG UNKNOWN
     Dates: start: 20110118
  5. LORATADINE. [Concomitant]
     Active Substance: LORATADINE
     Dosage: 10.0MG UNKNOWN
     Dates: start: 20110304
  6. ISOSORBIDE MONONITRATE. [Concomitant]
     Active Substance: ISOSORBIDE MONONITRATE
     Dosage: 30.0MG UNKNOWN
     Dates: start: 20110118
  7. ONDANSETRON HCL [Concomitant]
     Active Substance: ONDANSETRON HYDROCHLORIDE
     Dosage: 4.0MG UNKNOWN
     Dates: start: 20150224
  8. ETODOLAC. [Concomitant]
     Active Substance: ETODOLAC
     Dosage: 400.0MG UNKNOWN
     Dates: start: 20101220
  9. NITROSTAT [Concomitant]
     Active Substance: NITROGLYCERIN
     Dosage: 0.4MG UNKNOWN
     Route: 060
     Dates: start: 20110209
  10. ASPIRIN. [Concomitant]
     Active Substance: ASPIRIN
     Dosage: 81.0MG UNKNOWN
     Dates: start: 20111005
  11. CLINDAMYCIN HCL [Concomitant]
     Active Substance: CLINDAMYCIN HYDROCHLORIDE
     Dosage: 150.0MG UNKNOWN
     Dates: start: 20121029
  12. HYDROXYZINE HCL [Concomitant]
     Active Substance: HYDROXYZINE HYDROCHLORIDE
     Dosage: 50.0MG UNKNOWN
     Dates: start: 20140918
  13. QUETIAPINE. [Concomitant]
     Active Substance: QUETIAPINE
     Dosage: 50.0MG UNKNOWN
     Route: 048
     Dates: start: 20151202
  14. CLOPIDOGREL BISULFATE. [Concomitant]
     Active Substance: CLOPIDOGREL BISULFATE
     Dosage: 75.0MG UNKNOWN
     Dates: start: 20110118
  15. CYANOCOBALAMIN. [Concomitant]
     Active Substance: CYANOCOBALAMIN
     Dosage: 1000.0UG UNKNOWN
     Dates: start: 20110216
  16. ZOLPIDEM TARTRATE. [Concomitant]
     Active Substance: ZOLPIDEM TARTRATE
     Dosage: 5.0MG UNKNOWN
     Dates: start: 20110505
  17. IBUPROFEN. [Concomitant]
     Active Substance: IBUPROFEN
     Dosage: 40.0MG UNKNOWN
     Dates: start: 20150226
  18. CEPHALEXIN. [Concomitant]
     Active Substance: CEPHALEXIN
     Route: 048
     Dates: start: 20150102
  19. CRESTOR [Suspect]
     Active Substance: ROSUVASTATIN CALCIUM
     Indication: BLOOD CHOLESTEROL INCREASED
     Route: 048
     Dates: start: 200703
  20. INSULIN GLARGINE [Concomitant]
     Active Substance: INSULIN GLARGINE
     Dosage: 40 UNITS UNDER THE SKIN AT BEDTIME
     Dates: start: 20151201
  21. SENNOSIDE [Concomitant]
     Active Substance: SENNOSIDES
     Dosage: 8.6MG UNKNOWN
     Dates: start: 20130711
  22. ATORVASTATIN CALCIUM. [Concomitant]
     Active Substance: ATORVASTATIN CALCIUM
     Route: 048
     Dates: start: 20151201
  23. GABAPENTIN. [Concomitant]
     Active Substance: GABAPENTIN
     Dosage: 600.0MG UNKNOWN
     Dates: start: 20101220
  24. OXYBUTYNIN CHLORIDE. [Concomitant]
     Active Substance: OXYBUTYNIN CHLORIDE
     Dosage: 5.0MG UNKNOWN
     Dates: start: 20101220
  25. METOPROLOL SUCCINATE. [Concomitant]
     Active Substance: METOPROLOL SUCCINATE
     Dosage: 50.0MG UNKNOWN
     Dates: start: 20101220
  26. NIACIN. [Concomitant]
     Active Substance: NIACIN
     Dosage: 500.0MG UNKNOWN
     Dates: start: 20110118
  27. DOCUSATE NA [Concomitant]
     Active Substance: DOCUSATE
     Dosage: 250.0MG UNKNOWN
     Dates: start: 20120123
  28. VENLAFAXINE HCL [Concomitant]
     Active Substance: VENLAFAXINE HYDROCHLORIDE
     Dosage: 25.0MG UNKNOWN
     Dates: start: 20130828
  29. INDOMETHACIN. [Concomitant]
     Active Substance: INDOMETHACIN
     Dosage: 25.0MG UNKNOWN
     Dates: start: 20130722
  30. OMEPRAZOLE. [Concomitant]
     Active Substance: OMEPRAZOLE
     Dosage: 40.0MG UNKNOWN
     Dates: start: 20150224
  31. TRAZODONE [Concomitant]
     Active Substance: TRAZODONE HYDROCHLORIDE
     Dosage: 50.0MG UNKNOWN
     Route: 048
     Dates: start: 20151202
  32. ACETAMINOPHENE [Concomitant]
     Dosage: 325.0MG UNKNOWN
     Dates: start: 20101220
  33. GLIPIZIDE. [Concomitant]
     Active Substance: GLIPIZIDE
     Dosage: 5.0MG UNKNOWN
     Dates: start: 20110909
  34. SIMVASTATIN. [Concomitant]
     Active Substance: SIMVASTATIN
     Dosage: 80.0MG UNKNOWN
     Dates: start: 20110713
  35. ASCORBIC ACID. [Concomitant]
     Active Substance: ASCORBIC ACID
     Dosage: 500.0MG UNKNOWN
     Dates: start: 20131202
  36. FERROUS SULFATE. [Concomitant]
     Active Substance: FERROUS SULFATE
     Dosage: 325.0MG UNKNOWN
     Dates: start: 20131202
  37. HYDROCORTISONE ACETATE. [Concomitant]
     Active Substance: HYDROCORTISONE ACETATE
     Route: 054
     Dates: start: 20151201
  38. CIPROFLOXACIN HYDROCHLORIDE. [Concomitant]
     Active Substance: CIPROFLOXACIN HYDROCHLORIDE
     Dosage: 500.0MG UNKNOWN
     Dates: start: 20140911
  39. BISACODYL. [Concomitant]
     Active Substance: BISACODYL
     Dosage: 5.0MG UNKNOWN
     Dates: start: 20150914
  40. DIVALPROEX [Concomitant]
     Active Substance: DIVALPROEX SODIUM
     Dosage: 500.0MG UNKNOWN
     Dates: start: 20160113
  41. MEMANTINE. [Concomitant]
     Active Substance: MEMANTINE
     Dosage: 5.0MG UNKNOWN
     Dates: start: 20160208
  42. NAPROXEN. [Concomitant]
     Active Substance: NAPROXEN
     Dosage: 500.0MG UNKNOWN
     Route: 048
     Dates: start: 20151205

REACTIONS (8)
  - Type 2 diabetes mellitus [Not Recovered/Not Resolved]
  - Angina pectoris [Not Recovered/Not Resolved]
  - Coronary artery disease [Not Recovered/Not Resolved]
  - Cardiac failure congestive [Not Recovered/Not Resolved]
  - Hypertension [Not Recovered/Not Resolved]
  - Myocardial infarction [Not Recovered/Not Resolved]
  - Cardiovascular disorder [Not Recovered/Not Resolved]
  - Emotional distress [Unknown]

NARRATIVE: CASE EVENT DATE: 200703
